FAERS Safety Report 5895749-8 (Version None)
Quarter: 2008Q3

REPORT INFORMATION
  Report Type: 
  Country: None (occurrence: None)
  Receive Date: 20080924
  Receipt Date: 20080919
  Transmission Date: 20090109
  Serious: Yes (Other)
  Sender: FDA-Public Use
  Company Number: CA-BRISTOL-MYERS SQUIBB COMPANY-13959267

PATIENT
  Age: 58 Year
  Sex: Female

DRUGS (22)
  1. ORENCIA [Suspect]
     Indication: RHEUMATOID ARTHRITIS
     Dosage: 13JUN,27JUN,11JUL,9AUG,6SEP;4OCT,1,29NOV07,3,31JAN,1,27MAR,22APR,29MAY,26JUN,25JUL,21AUG,18SEP08.
     Route: 042
     Dates: start: 20070613
  2. ORENCIA [Suspect]
     Indication: POLYARTHRITIS
     Dosage: 13JUN,27JUN,11JUL,9AUG,6SEP;4OCT,1,29NOV07,3,31JAN,1,27MAR,22APR,29MAY,26JUN,25JUL,21AUG,18SEP08.
     Route: 042
     Dates: start: 20070613
  3. MENOSENSE [Suspect]
     Indication: MENOPAUSAL SYMPTOMS
  4. PLAQUENIL [Concomitant]
     Dosage: 1 TAB ALTERNATE WITH 2 TABS DAILY.
  5. IMURAN [Concomitant]
  6. FOSAMAX [Concomitant]
  7. TRILEPTAL [Concomitant]
  8. MICARDIS HCT [Concomitant]
  9. NORVASC [Concomitant]
  10. NEXIUM [Concomitant]
  11. FLEXERIL [Concomitant]
  12. VENTOLIN [Concomitant]
  13. ATROVENT [Concomitant]
  14. PULMICORT-100 [Concomitant]
  15. VALIUM [Concomitant]
  16. ATARAX [Concomitant]
  17. DALMANE [Concomitant]
  18. MS CONTIN [Concomitant]
  19. TRAZODONE HCL [Concomitant]
  20. DILAUDID [Concomitant]
  21. SEROQUEL [Concomitant]
  22. ALDARA [Concomitant]

REACTIONS (7)
  - ARTHRALGIA [None]
  - JOINT SWELLING [None]
  - PNEUMONIA [None]
  - PYODERMA GANGRENOSUM [None]
  - RASH [None]
  - SKIN CANCER [None]
  - WEIGHT DECREASED [None]
